FAERS Safety Report 9300845 (Version 1)
Quarter: 2013Q2

REPORT INFORMATION
  Report Type: Spontaneous
  Country: DE (occurrence: DE)
  Receive Date: 20130521
  Receipt Date: 20130521
  Transmission Date: 20140414
  Serious: Yes (Other)
  Sender: FDA-Public Use
  Company Number: GXKR2013DE001850

PATIENT
  Sex: Female
  Weight: 64 kg

DRUGS (4)
  1. VENLAFAXINE [Suspect]
     Indication: BIPOLAR DISORDER
     Dosage: 75 MG/D SINCE 2009
     Route: 048
     Dates: start: 20111102, end: 20120727
  2. QUILONORM RETARD [Suspect]
     Indication: BIPOLAR DISORDER
     Dosage: 1350 MG/D SINCE 2009 (3X450 TO1125)BETWEEN 7MAY AND 30MAY INCREASED TO 1350 MG/D
     Route: 048
     Dates: start: 20111102, end: 20120727
  3. SEROQUEL [Suspect]
     Indication: BIPOLAR DISORDER
     Dosage: 200 MG/D SINCE 2009
     Route: 048
     Dates: start: 20111102, end: 20120727
  4. FOLIC ACID [Concomitant]
     Indication: PROPHYLAXIS OF NEURAL TUBE DEFECT
     Dosage: 5 MG/D + PRECONC.
     Route: 048
     Dates: start: 20111102, end: 20120727

REACTIONS (3)
  - Polyhydramnios [Recovered/Resolved]
  - Gestational diabetes [Recovered/Resolved]
  - Exposure during pregnancy [Unknown]
